FAERS Safety Report 13800514 (Version 1)
Quarter: 2017Q3

REPORT INFORMATION
  Report Type: Spontaneous
  Country: US (occurrence: US)
  Receive Date: 20170727
  Receipt Date: 20170727
  Transmission Date: 20171127
  Serious: No
  Sender: FDA-Public Use
  Company Number: US-MYLANLABS-2016M1047378

PATIENT
  Sex: Female

DRUGS (1)
  1. LEVOTHYROXINE SODIUM TABLETS, USP [Suspect]
     Active Substance: LEVOTHYROXINE SODIUM
     Indication: PRODUCT USED FOR UNKNOWN INDICATION
     Dosage: 150 ?G, QD
     Route: 048

REACTIONS (2)
  - Anxiety [Recovered/Resolved]
  - Blood thyroid stimulating hormone decreased [Recovering/Resolving]

NARRATIVE: CASE EVENT DATE: 2016
